FAERS Safety Report 7883470-6 (Version None)
Quarter: 2011Q4

REPORT INFORMATION
  Report Type: 
  Country: None (occurrence: None)
  Receive Date: 20111102
  Receipt Date: 20111021
  Transmission Date: 20120403
  Serious: Yes (Hospitalization)
  Sender: FDA-Public Use
  Company Number: US-BAYER-2011-052241

PATIENT
  Sex: Female
  Weight: 58.957 kg

DRUGS (9)
  1. YAZ [Suspect]
     Indication: ACNE
     Dosage: UNK
     Dates: start: 20100127
  2. VITAMIN D [Concomitant]
     Indication: SUPPLEMENTATION THERAPY
  3. XANAX [Concomitant]
     Dosage: 0.5 MG, UNK
     Dates: start: 20100308
  4. CALCIUM [Concomitant]
     Indication: SUPPLEMENTATION THERAPY
  5. MULTI-VITAMIN [Concomitant]
  6. NORETHINDRONE [Concomitant]
     Indication: CONTRACEPTION
  7. NSAID'S [Concomitant]
  8. ACYCLOVIR [Concomitant]
     Indication: MENINGITIS HERPES
     Dosage: 1 DF, QD
  9. ALPRAZOLAM [Concomitant]
     Indication: ANXIETY

REACTIONS (4)
  - INJURY [None]
  - DEEP VEIN THROMBOSIS [None]
  - PAIN [None]
  - PULMONARY EMBOLISM [None]
